FAERS Safety Report 20514114 (Version 1)
Quarter: 2022Q1

REPORT INFORMATION
  Report Type: Report from Study
  Country: US (occurrence: US)
  Receive Date: 20220224
  Receipt Date: 20220224
  Transmission Date: 20220423
  Serious: Yes (Disabling)
  Sender: FDA-Public Use
  Company Number: US-TAKEDA-2022TUS010764

PATIENT
  Age: 50 Year
  Sex: Female

DRUGS (1)
  1. PRUCALOPRIDE [Suspect]
     Active Substance: PRUCALOPRIDE
     Indication: Product used for unknown indication
     Dosage: UNK
     Route: 065
     Dates: start: 20220215, end: 20220215

REACTIONS (4)
  - Asthenia [Not Recovered/Not Resolved]
  - Therapy interrupted [Not Recovered/Not Resolved]
  - Product availability issue [Not Recovered/Not Resolved]
  - Insurance issue [Not Recovered/Not Resolved]

NARRATIVE: CASE EVENT DATE: 20220215
